FAERS Safety Report 17134945 (Version 1)
Quarter: 2019Q4

REPORT INFORMATION
  Report Type: Spontaneous
  Country: FR (occurrence: FR)
  Receive Date: 20191210
  Receipt Date: 20191210
  Transmission Date: 20200122
  Serious: Yes (Death, Hospitalization, Other)
  Sender: FDA-Public Use
  Company Number: FR-PFIZER INC-2018337932

PATIENT
  Age: 47 Year
  Sex: Female
  Weight: 60 kg

DRUGS (7)
  1. CYCLOPHOSPHAMIDE. [Suspect]
     Active Substance: CYCLOPHOSPHAMIDE
     Dosage: 1175 MG, 1X/DAY
     Route: 041
     Dates: start: 20180222, end: 20180223
  2. DOXORUBICIN HCL [Suspect]
     Active Substance: DOXORUBICIN HYDROCHLORIDE
     Indication: B-CELL LYMPHOMA
     Dosage: 89 MG, CYCLIC
     Route: 041
     Dates: start: 20160323, end: 20160727
  3. CYCLOPHOSPHAMIDE. [Suspect]
     Active Substance: CYCLOPHOSPHAMIDE
     Dosage: 4050 MG, 1X/DAY
     Route: 041
     Dates: start: 20180303, end: 20180304
  4. NEORAL [Concomitant]
     Active Substance: CYCLOSPORINE
     Indication: PROPHYLAXIS AGAINST TRANSPLANT REJECTION
     Dosage: BASED ON CICLOSPORIN BLOOD LEVEL
     Route: 048
     Dates: start: 20180305
  5. CYMBALTA [Concomitant]
     Active Substance: DULOXETINE HYDROCHLORIDE
     Dosage: 30 MG, 1X/DAY (^^1 DF^^)
     Route: 048
  6. CYCLOPHOSPHAMIDE. [Suspect]
     Active Substance: CYCLOPHOSPHAMIDE
     Indication: B-CELL LYMPHOMA
     Dosage: 1315 MG, CYCLIC
     Route: 041
     Dates: start: 20160323, end: 20160727
  7. BISOCE [Concomitant]
     Active Substance: BISOPROLOL
     Dosage: 2.5 MG, 1X/DAY (^^1 DF^^)
     Route: 048

REACTIONS (2)
  - Graft versus host disease [Fatal]
  - Cardiac failure [Not Recovered/Not Resolved]

NARRATIVE: CASE EVENT DATE: 20180617
